FAERS Safety Report 25173756 (Version 1)
Quarter: 2025Q2

REPORT INFORMATION
  Report Type: Spontaneous
  Country: FR (occurrence: FR)
  Receive Date: 20250408
  Receipt Date: 20250408
  Transmission Date: 20250717
  Serious: Yes (Death)
  Sender: MYLAN
  Company Number: None

PATIENT
  Age: 36 Year
  Sex: Male

DRUGS (4)
  1. SILDENAFIL [Suspect]
     Active Substance: SILDENAFIL
     Indication: Product used for unknown indication
  2. COCAINE [Suspect]
     Active Substance: COCAINE
     Indication: Product used for unknown indication
  3. AMPHETAMINE [Suspect]
     Active Substance: AMPHETAMINE
     Indication: Product used for unknown indication
  4. CANNABIS SATIVA SUBSP. INDICA TOP [Suspect]
     Active Substance: CANNABIS SATIVA SUBSP. INDICA TOP
     Indication: Product used for unknown indication

REACTIONS (4)
  - Coma [Fatal]
  - Encephalopathy [Fatal]
  - Pneumonia aspiration [Fatal]
  - Mydriasis [Fatal]

NARRATIVE: CASE EVENT DATE: 20250216
